FAERS Safety Report 20527289 (Version 1)
Quarter: 2022Q1

REPORT INFORMATION
  Report Type: Spontaneous
  Country: US (occurrence: None)
  Receive Date: 20220228
  Receipt Date: 20220228
  Transmission Date: 20220423
  Serious: No
  Sender: FDA-Public Use
  Company Number: None

PATIENT
  Age: 39 Year
  Sex: Female

DRUGS (1)
  1. OPSUMIT [Suspect]
     Active Substance: MACITENTAN
     Indication: Pulmonary arterial hypertension
     Dosage: 10MG ONCE DAILY BY MOUTH
     Route: 048
     Dates: start: 202105

REACTIONS (3)
  - Food poisoning [None]
  - Complication associated with device [None]
  - Therapy interrupted [None]

NARRATIVE: CASE EVENT DATE: 20220227
